FAERS Safety Report 9670200 (Version 1)
Quarter: 2013Q4

REPORT INFORMATION
  Report Type: Spontaneous
  Country: US (occurrence: None)
  Receive Date: 20131104
  Receipt Date: 20131104
  Transmission Date: 20140711
  Serious: Yes (Other)
  Sender: FDA-Public Use
  Company Number: AUR-APL-2013-09127

PATIENT
  Age: 80 Year
  Sex: Female
  Weight: 104 kg

DRUGS (4)
  1. METFORMIN (METFORMIN) [Suspect]
     Indication: DIABETES MELLITUS
  2. GLIMEPIRIDE [Suspect]
     Indication: DIABETES MELLITUS
  3. PANTOPRAZOLE (PANTOPRAZOLE) [Suspect]
     Indication: GASTROOESOPHAGEAL REFLUX DISEASE
     Dates: start: 201310
  4. LANTUS (INSULIN GLARGINE) [Suspect]
     Indication: DIABETES MELLITUS
     Dates: start: 201310

REACTIONS (2)
  - Hypertension [None]
  - Blood glucose increased [None]
